FAERS Safety Report 5591742-3 (Version None)
Quarter: 2008Q1

REPORT INFORMATION
  Report Type: 
  Country: None (occurrence: None)
  Receive Date: 20080115
  Receipt Date: 20080111
  Transmission Date: 20080703
  Serious: Yes (Life-Threatening, Hospitalization, Disabling, Other)
  Sender: FDA-Public Use
  Company Number: A0697294A

PATIENT
  Age: 50 Year
  Sex: Female
  Weight: 63.6 kg

DRUGS (6)
  1. IMITREX [Suspect]
     Indication: MIGRAINE
     Dosage: 50MG AS REQUIRED
     Route: 048
     Dates: start: 20020101, end: 20071114
  2. CATAFLAM [Concomitant]
  3. ALLEGRA [Concomitant]
  4. FLONASE [Concomitant]
  5. NITROGLYCERIN [Concomitant]
  6. PREMARIN [Concomitant]

REACTIONS (5)
  - CARDIAC ARREST [None]
  - CHEST PAIN [None]
  - MUSCLE SPASMS [None]
  - SKIN DISCOLOURATION [None]
  - TORSADE DE POINTES [None]
